FAERS Safety Report 23982325 (Version 2)
Quarter: 2025Q1

REPORT INFORMATION
  Report Type: Report from Study
  Country: ZA (occurrence: ZA)
  Receive Date: 20240617
  Receipt Date: 20250320
  Transmission Date: 20250409
  Serious: Yes (Hospitalization)
  Sender: ABBVIE
  Company Number: ZA-ABBOTT-2024A-1382827

PATIENT
  Age: 60 Year
  Sex: Male

DRUGS (13)
  1. FENOFIBRATE [Suspect]
     Active Substance: FENOFIBRATE
     Indication: Blood cholesterol abnormal
     Dosage: 200 MG TAKE ONE CAPSULE AT NIGHT? (FENOFIBRATE - A  DERIVATIVE OF FIBRIC  ACID.)
     Route: 048
  2. Optisulin [Concomitant]
     Indication: Diabetes mellitus
     Route: 058
  3. ECOTRIN [Concomitant]
     Active Substance: ASPIRIN
     Indication: Blood disorder
     Dosage: 81 MG TAKE ONE TABLET DAILY
     Route: 048
  4. METFORMIN HYDROCHLORIDE\VILDAGLIPTIN [Concomitant]
     Active Substance: METFORMIN HYDROCHLORIDE\VILDAGLIPTIN
     Indication: Diabetes mellitus
     Dosage: 50/1000 MG TAKE ONE TABLET AT NIGHT
     Route: 048
  5. RIVAROXABAN [Concomitant]
     Active Substance: RIVAROXABAN
     Indication: Blood disorder
     Dosage: 20 MG TAKE A HALF A TABLET IN THE MORNING
     Route: 048
  6. BISOPROLOL FUMARATE\PERINDOPRIL ARGININE [Concomitant]
     Active Substance: BISOPROLOL FUMARATE\PERINDOPRIL ARGININE
     Indication: Hypertension
     Dosage: 5/5 MG TAKE A HALF A TABLET IN THE MORNING
     Route: 048
  7. CLINDAMYCIN HYDROCHLORIDE [Concomitant]
     Active Substance: CLINDAMYCIN HYDROCHLORIDE
     Indication: Product used for unknown indication
     Dosage: 150 MG TAKE TWO CAPSULES THREE TIMES A DAY ORALLY
     Route: 048
  8. JARDIANCE [Concomitant]
     Active Substance: EMPAGLIFLOZIN
     Indication: Diabetes mellitus
     Dosage: 10 MG TAKE ONE TABLET IN THE MORNING
     Route: 048
  9. Spiractin [Concomitant]
     Indication: Hypertension
     Dosage: 25 MG TAKE A HALF A TABLET TWICE A DAY
     Route: 048
  10. ESOMEPRAZOLE [Concomitant]
     Active Substance: ESOMEPRAZOLE
     Indication: Ulcer
     Dosage: 20 MG TAKE ONE TABLET ONCE PER DAY
     Route: 048
  11. LYRICA [Concomitant]
     Active Substance: PREGABALIN
     Indication: Pain
     Dosage: 25 MG TAKE TWO CAPSULES AT NIGHT
     Route: 048
  12. Gen payne [Concomitant]
     Indication: Product used for unknown indication
     Route: 048
  13. ROSUVASTATIN [Concomitant]
     Active Substance: ROSUVASTATIN
     Indication: Blood cholesterol
     Dosage: 40 MG TAKE ONE TABLET AT NIGHT
     Route: 048

REACTIONS (1)
  - Foot operation [Unknown]
